FAERS Safety Report 11250733 (Version 2)
Quarter: 2015Q3

REPORT INFORMATION
  Report Type: Spontaneous
  Country: US (occurrence: US)
  Receive Date: 20150708
  Receipt Date: 20150831
  Transmission Date: 20151125
  Serious: No
  Sender: FDA-Public Use
  Company Number: US-ELI_LILLY_AND_COMPANY-US201103007000

PATIENT
  Sex: Female

DRUGS (6)
  1. CYMBALTA [Suspect]
     Active Substance: DULOXETINE HYDROCHLORIDE
     Dosage: 60 MG, QD
     Dates: start: 201103
  2. CYMBALTA [Suspect]
     Active Substance: DULOXETINE HYDROCHLORIDE
     Indication: DEPRESSION
     Dosage: 60 MG, BID
     Dates: start: 2007, end: 2007
  3. INDERAL [Concomitant]
     Active Substance: PROPRANOLOL HYDROCHLORIDE
  4. PROZAC [Suspect]
     Active Substance: FLUOXETINE HYDROCHLORIDE
     Indication: DRUG WITHDRAWAL SYNDROME
     Dosage: UNK, QD
  5. CYMBALTA [Suspect]
     Active Substance: DULOXETINE HYDROCHLORIDE
     Dosage: 60 MG, BID
     Dates: end: 201102
  6. XANAX                                   /USA/ [Concomitant]

REACTIONS (11)
  - Paraesthesia [Recovered/Resolved]
  - Hypoacusis [Recovered/Resolved]
  - Off label use [Recovered/Resolved]
  - Exposure during pregnancy [Recovered/Resolved]
  - Motor dysfunction [Recovered/Resolved]
  - Muscle tightness [Recovered/Resolved]
  - Feeling abnormal [Recovered/Resolved]
  - Sensory disturbance [Recovered/Resolved]
  - Abnormal dreams [Recovered/Resolved]
  - Dysarthria [Recovered/Resolved]
  - Drug withdrawal syndrome [Recovered/Resolved]

NARRATIVE: CASE EVENT DATE: 2007
